FAERS Safety Report 5500159-9 (Version None)
Quarter: 2007Q4

REPORT INFORMATION
  Report Type: 
  Country: None (occurrence: None)
  Receive Date: 20071025
  Receipt Date: 20071010
  Transmission Date: 20080405
  Serious: Yes (Hospitalization, Other)
  Sender: FDA-Public Use
  Company Number: 2007002021

PATIENT
  Sex: Male

DRUGS (1)
  1. MACUGEN [Suspect]
     Indication: MACULAR DEGENERATION
     Dosage: INTRA-VITREAL
     Dates: start: 20061006, end: 20070903

REACTIONS (3)
  - MACULAR HOLE [None]
  - RETINAL HAEMORRHAGE [None]
  - RETINAL TEAR [None]
